FAERS Safety Report 9661134 (Version 2)
Quarter: 2013Q4

REPORT INFORMATION
  Report Type: Spontaneous
  Country: GB (occurrence: GB)
  Receive Date: 20131031
  Receipt Date: 20131031
  Transmission Date: 20140711
  Serious: Yes (Other)
  Sender: FDA-Public Use
  Company Number: GB-ABBVIE-13P-167-1130346-00

PATIENT
  Age: 40 Year
  Sex: Male

DRUGS (4)
  1. HUMIRA [Suspect]
     Indication: PRODUCT USED FOR UNKNOWN INDICATION
     Route: 058
     Dates: start: 201103, end: 20111117
  2. HUMIRA [Suspect]
     Route: 058
     Dates: start: 201112
  3. HUMIRA [Suspect]
  4. SIMPONI [Suspect]
     Indication: PSORIATIC ARTHROPATHY
     Route: 058
     Dates: start: 20120921, end: 20120921

REACTIONS (6)
  - Euphoric mood [Not Recovered/Not Resolved]
  - Screaming [Unknown]
  - Anger [Unknown]
  - Aggression [Unknown]
  - Irritability [Not Recovered/Not Resolved]
  - Mood swings [Not Recovered/Not Resolved]
